FAERS Safety Report 7579055-1 (Version None)
Quarter: 2011Q2

REPORT INFORMATION
  Report Type: 
  Country: None (occurrence: None)
  Receive Date: 20110628
  Receipt Date: 20110616
  Transmission Date: 20111010
  Serious: Yes (Other)
  Sender: FDA-Public Use
  Company Number: PHHY2011JP53666

PATIENT
  Age: 63 Year
  Sex: Male

DRUGS (2)
  1. PACLITAXEL [Suspect]
     Indication: LUNG NEOPLASM MALIGNANT
     Dosage: 100 MG/M2, UNK(DAY 1,8 TWO CYCLES)
  2. CARBOPLATIN [Suspect]
     Indication: LUNG NEOPLASM MALIGNANT
     Dosage: DAY 1,8 TWO CYCLES

REACTIONS (4)
  - SARCOIDOSIS [None]
  - LEUKOPENIA [None]
  - HILAR LYMPHADENOPATHY [None]
  - GRANULOMA [None]
